FAERS Safety Report 4383600-7 (Version None)
Quarter: 2004Q2

REPORT INFORMATION
  Report Type: 
  Country: None (occurrence: None)
  Receive Date: 20040618
  Receipt Date: 20040604
  Transmission Date: 20050107
  Serious: Yes (Hospitalization)
  Sender: FDA-Public Use
  Company Number: 2004-BP-01620BP

PATIENT
  Age: 67 Year
  Sex: Male

DRUGS (8)
  1. AGGRENOX [Suspect]
     Indication: CEREBROVASCULAR ACCIDENT PROPHYLAXIS
     Dosage: SEE TEXT (SEE TEXT), PO
     Route: 048
     Dates: start: 20030101
  2. AGGRENOX [Suspect]
     Indication: PROPHYLAXIS
     Dosage: SEE TEXT (SEE TEXT), PO
     Route: 048
     Dates: start: 20030101
  3. AGGRENOX [Suspect]
     Indication: TRANSIENT ISCHAEMIC ATTACK
     Dosage: SEE TEXT (SEE TEXT), PO
     Route: 048
     Dates: start: 20030101
  4. RISPERDAL [Suspect]
     Indication: DEMENTIA
     Dosage: 0.5 MGX2, TX WAS INITIATED IN MAR/APR03
  5. DEPAKOTE [Suspect]
     Dosage: 750 MG (25 MG/200 MG) (1 CAPSULE BID), TX WAS INITIATED IN MAR/APR03
  6. PRILOSEC [Concomitant]
  7. ZOLOFT [Concomitant]
  8. AVANDIA [Concomitant]

REACTIONS (4)
  - ANAEMIA [None]
  - DIABETIC ULCER [None]
  - FOOT AMPUTATION [None]
  - TREMOR [None]
